FAERS Safety Report 8573496 (Version 3)
Quarter: 2012Q4

REPORT INFORMATION
  Report Type: 
  Country: US (occurrence: US)
  Receive Date: 20120522
  Receipt Date: 20120911
  Transmission Date: 20130627
  Serious: Yes (Other)
  Sender: FDA-Public Use
  Company Number: US-PERRIGO-12US004279

PATIENT
  Age: 10 Year
  Sex: Female
  Weight: 54.42 kg

DRUGS (2)
  1. ANTI NAUSEA LIQ 291 [Suspect]
     Indication: NAUSEA
     Dosage: 5 to 7.5 mL, Single
     Route: 048
     Dates: start: 20120503, end: 20120503
  2. VITAMINS [Concomitant]
     Indication: SUPPLEMENTATION THERAPY
     Dosage: UNK, Unknown
     Route: 065

REACTIONS (7)
  - Hypersensitivity [Recovered/Resolved]
  - Urticaria [Recovered/Resolved]
  - Erythema [Recovered/Resolved]
  - Joint swelling [Recovered/Resolved]
  - Pruritus [Recovered/Resolved]
  - Pain [Recovered/Resolved]
  - Discomfort [Recovered/Resolved]
